FAERS Safety Report 19374536 (Version 2)
Quarter: 2021Q2

REPORT INFORMATION
  Report Type: Spontaneous
  Country: JP (occurrence: JP)
  Receive Date: 20210603
  Receipt Date: 20210604
  Transmission Date: 20210717
  Serious: Yes (Hospitalization, Other)
  Sender: FDA-Public Use
  Company Number: JP-009507513-2105JPN001843J

PATIENT
  Age: 6 Decade
  Sex: Female

DRUGS (3)
  1. BELSOMRA [Suspect]
     Active Substance: SUVOREXANT
     Indication: INSOMNIA
     Dosage: UNK
     Route: 048
     Dates: start: 202101, end: 20210524
  2. BELSOMRA [Suspect]
     Active Substance: SUVOREXANT
     Dosage: 29 TABLETS OF 15 MG, 13 TABLETS OF 20 MG, FOR A TOTAL OF 695MG
     Route: 048
     Dates: start: 20210525, end: 20210525
  3. DAYVIGO [Concomitant]
     Active Substance: LEMBOREXANT
     Dosage: UNK
     Route: 048

REACTIONS (3)
  - Loss of consciousness [Recovered/Resolved]
  - Hypoaesthesia oral [Recovering/Resolving]
  - Overdose [Unknown]

NARRATIVE: CASE EVENT DATE: 202105
